FAERS Safety Report 7161550-0 (Version None)
Quarter: 2010Q4

REPORT INFORMATION
  Report Type: 
  Country: None (occurrence: None)
  Receive Date: 20101215
  Receipt Date: 20101206
  Transmission Date: 20110411
  Serious: Yes (Death, Hospitalization, Other)
  Sender: FDA-Public Use
  Company Number: JP-JNJFOC-20100502465

PATIENT
  Sex: Female
  Weight: 51 kg

DRUGS (53)
  1. DOXORUBICIN HYDROCHLORIDE [Suspect]
     Indication: OVARIAN CANCER RECURRENT
     Dosage: CYCLE 5
     Route: 042
  2. DOXORUBICIN HYDROCHLORIDE [Suspect]
     Dosage: CYCLE 4
     Route: 042
  3. DOXORUBICIN HYDROCHLORIDE [Suspect]
     Dosage: CYCLE 6
     Route: 042
  4. DOXORUBICIN HYDROCHLORIDE [Suspect]
     Dosage: CYCLE 7
     Route: 042
  5. DOXORUBICIN HYDROCHLORIDE [Suspect]
     Dosage: CYCLE 1
     Route: 042
  6. DOXORUBICIN HYDROCHLORIDE [Suspect]
     Dosage: CYCLE 2
     Route: 042
  7. DOXORUBICIN HYDROCHLORIDE [Suspect]
     Dosage: CYCLE 3
     Route: 042
  8. MS ONSHIPPU [Concomitant]
     Indication: ARTHRALGIA
     Route: 061
  9. KYTRIL [Concomitant]
     Indication: PROPHYLAXIS
     Route: 042
  10. KYTRIL [Concomitant]
     Route: 042
  11. KYTRIL [Concomitant]
     Route: 042
  12. KYTRIL [Concomitant]
     Route: 042
  13. KYTRIL [Concomitant]
     Route: 042
  14. KYTRIL [Concomitant]
     Route: 042
  15. KYTRIL [Concomitant]
     Route: 042
  16. DEXART [Concomitant]
     Indication: PROPHYLAXIS
     Route: 042
  17. DEXART [Concomitant]
     Route: 042
  18. DEXART [Concomitant]
     Route: 042
  19. DEXART [Concomitant]
     Route: 042
  20. DEXART [Concomitant]
     Route: 042
  21. DEXART [Concomitant]
     Route: 042
  22. DEXART [Concomitant]
     Route: 042
  23. ZOMETA [Concomitant]
     Indication: PROPHYLAXIS
     Route: 042
  24. ZOMETA [Concomitant]
     Route: 042
  25. ZOMETA [Concomitant]
     Route: 042
  26. ZOMETA [Concomitant]
     Route: 042
  27. ZOMETA [Concomitant]
     Route: 042
  28. ZOMETA [Concomitant]
     Route: 042
  29. ZOMETA [Concomitant]
     Route: 042
  30. UREPEARL [Concomitant]
     Indication: PALMAR-PLANTAR ERYTHRODYSAESTHESIA SYNDROME
     Route: 061
  31. UREPEARL [Concomitant]
     Route: 061
  32. UREPEARL [Concomitant]
     Indication: PROPHYLAXIS
     Route: 061
  33. UREPEARL [Concomitant]
     Route: 061
  34. CELESTAMINE TAB [Concomitant]
     Indication: PROPHYLAXIS
     Route: 048
  35. CELESTAMINE TAB [Concomitant]
     Route: 048
  36. HACHIAZULE [Concomitant]
     Indication: GASTROINTESTINAL DISORDER THERAPY
     Route: 049
  37. UREPEARL [Concomitant]
     Route: 061
  38. UREPEARL [Concomitant]
     Route: 061
  39. UREPEARL [Concomitant]
     Route: 061
  40. UREPEARL [Concomitant]
     Route: 061
  41. CHLOR-TRIMETON [Concomitant]
     Indication: PROPHYLAXIS
     Route: 042
  42. CHLOR-TRIMETON [Concomitant]
     Route: 042
  43. CHLOR-TRIMETON [Concomitant]
     Route: 042
  44. CHLOR-TRIMETON [Concomitant]
     Route: 042
  45. CHLOR-TRIMETON [Concomitant]
     Route: 042
  46. CHLOR-TRIMETON [Concomitant]
     Route: 042
  47. CHLOR-TRIMETON [Concomitant]
     Route: 042
  48. GRAN [Concomitant]
     Indication: NEUTROPHIL COUNT DECREASED
     Route: 058
  49. GRAN [Concomitant]
     Route: 058
  50. AMLODIN [Concomitant]
     Indication: HYPERTENSION
     Route: 048
  51. LOXONIN [Concomitant]
     Indication: PAIN
     Route: 048
  52. SOLDEM 3A [Concomitant]
     Indication: DECREASED APPETITE
     Route: 041
  53. MOBIC [Concomitant]
     Indication: ARTHRALGIA
     Route: 048

REACTIONS (6)
  - ARTHRALGIA [None]
  - HAEMOGLOBIN DECREASED [None]
  - HYPERTENSION [None]
  - MALIGNANT NEOPLASM PROGRESSION [None]
  - NEUTROPHIL COUNT DECREASED [None]
  - OVARIAN CANCER [None]
